FAERS Safety Report 6073089-4 (Version None)
Quarter: 2009Q1

REPORT INFORMATION
  Report Type: 
  Country: None (occurrence: None)
  Receive Date: 20090205
  Receipt Date: 20090128
  Transmission Date: 20090719
  Serious: Yes (Hospitalization)
  Sender: FDA-Public Use
  Company Number: DSA_33137_2009

PATIENT
  Age: 74 Year
  Sex: Male

DRUGS (2)
  1. ENALAPRIL MALEATE [Suspect]
     Indication: HYPERTENSION
     Dosage: (2.5 MG QD ORAL)
     Route: 048
     Dates: start: 19990301, end: 20090127
  2. CALSLOT [Concomitant]

REACTIONS (3)
  - DRUG ERUPTION [None]
  - ENURESIS [None]
  - STEVENS-JOHNSON SYNDROME [None]
